FAERS Safety Report 5514424-2 (Version None)
Quarter: 2007Q4

REPORT INFORMATION
  Report Type: 
  Country: None (occurrence: None)
  Receive Date: 20071113
  Receipt Date: 20070516
  Transmission Date: 20080405
  Serious: No
  Sender: FDA-Public Use
  Company Number: A0651672A

PATIENT
  Age: 62 Year
  Sex: Male

DRUGS (9)
  1. COREG [Suspect]
     Indication: LEFT VENTRICULAR DYSFUNCTION
     Route: 048
     Dates: start: 20060101
  2. GLUCOTROL [Concomitant]
  3. GLUCOPHAGE [Concomitant]
  4. LIPITOR [Concomitant]
  5. ASPIRIN [Concomitant]
  6. PROTONIX [Concomitant]
  7. IRON [Concomitant]
  8. LISINOPRIL [Concomitant]
  9. IBUPROFEN [Concomitant]

REACTIONS (1)
  - BLOOD PRESSURE INCREASED [None]
